FAERS Safety Report 5409625-8 (Version None)
Quarter: 2007Q3

REPORT INFORMATION
  Report Type: 
  Country: None (occurrence: None)
  Receive Date: 20070807
  Receipt Date: 20070727
  Transmission Date: 20080115
  Serious: Yes (Death)
  Sender: FDA-Public Use
  Company Number: GXKR2007US06473

PATIENT
  Age: 14 Year
  Sex: Male

DRUGS (1)
  1. ASPIRIN [Suspect]
     Indication: VIRAL INFECTION

REACTIONS (8)
  - BLOOD CREATINE PHOSPHOKINASE INCREASED [None]
  - BLOOD LACTATE DEHYDROGENASE INCREASED [None]
  - BRAIN OEDEMA [None]
  - CEREBROVASCULAR ACCIDENT [None]
  - HAEMODIALYSIS [None]
  - HERNIA [None]
  - LIVER FUNCTION TEST ABNORMAL [None]
  - REYE'S SYNDROME [None]
